FAERS Safety Report 15257849 (Version 1)
Quarter: 2018Q3

REPORT INFORMATION
  Report Type: Spontaneous
  Country: US (occurrence: US)
  Receive Date: 20180718
  Receipt Date: 20180718
  Transmission Date: 20181010
  Serious: Yes (Life-Threatening, Hospitalization)
  Sender: FDA-Public Use
  Company Number: None

PATIENT
  Age: 52 Year
  Sex: Female
  Weight: 57.6 kg

DRUGS (6)
  1. LETROZOLE 2.5 MG [Suspect]
     Active Substance: LETROZOLE
     Indication: ENDOMETRIAL CANCER
     Dosage: DAYS 1?28
     Dates: start: 20180123, end: 20180716
  2. RIBOCICLIB 400 MG [Suspect]
     Active Substance: RIBOCICLIB
     Indication: ENDOMETRIAL CANCER
  3. FLUOXETINE [Concomitant]
     Active Substance: FLUOXETINE HYDROCHLORIDE
  4. MAGNESIUM CHLORIDE. [Concomitant]
     Active Substance: MAGNESIUM CHLORIDE
  5. METROPROLOL SUCCINATE [Concomitant]
  6. LEVOTHYROXINE. [Concomitant]
     Active Substance: LEVOTHYROXINE

REACTIONS (2)
  - Pneumonia [None]
  - Febrile neutropenia [None]

NARRATIVE: CASE EVENT DATE: 20180716
